FAERS Safety Report 9538471 (Version 2)
Quarter: 2013Q3

REPORT INFORMATION
  Report Type: Spontaneous
  Country: US (occurrence: None)
  Receive Date: 20130510
  Receipt Date: 20130816
  Transmission Date: 20140515
  Serious: No
  Sender: FDA-Public Use
  Company Number: US-010993

PATIENT
  Age: 73 Year
  Sex: Male
  Weight: 72.58 kg

DRUGS (6)
  1. PICO-SALAX [Suspect]
     Indication: COLONOSCOPY
     Dosage: (FIRST PACKET @1530 (3:30 PM) EST , SECOND PACKET @ 2115 (9:15 PM) EST)
     Dates: start: 20130219, end: 20130219
  2. PICO-SALAX [Suspect]
     Indication: BOWEL PREPARATION
     Dosage: (FIRST PACKET @1530 (3:30 PM) EST , SECOND PACKET @ 2115 (9:15 PM) EST)
     Dates: start: 20130219, end: 20130219
  3. METFORMIN [Concomitant]
  4. EFFEXOR [Concomitant]
  5. HYDROCHLOROTHIAZIDE [Concomitant]
  6. SYNTHROID [Concomitant]

REACTIONS (2)
  - Product taste abnormal [None]
  - Drug ineffective [None]
